FAERS Safety Report 19921529 (Version 1)
Quarter: 2021Q4

REPORT INFORMATION
  Report Type: Spontaneous
  Country: IT (occurrence: IT)
  Receive Date: 20211006
  Receipt Date: 20211006
  Transmission Date: 20220303
  Serious: Yes (Other)
  Sender: FDA-Public Use
  Company Number: IT-PFIZER INC-202101264498

PATIENT
  Age: 67 Year
  Sex: Male

DRUGS (9)
  1. GENTAMICIN [Suspect]
     Active Substance: GENTAMICIN
     Indication: Bacterial infection
     Route: 065
  2. GENTAMICIN [Suspect]
     Active Substance: GENTAMICIN
     Indication: Pneumonia klebsiella
  3. TIGECYCLINE [Suspect]
     Active Substance: TIGECYCLINE
     Indication: Bacterial infection
     Route: 065
  4. TIGECYCLINE [Suspect]
     Active Substance: TIGECYCLINE
     Indication: Pneumonia klebsiella
  5. COLISTIN [Suspect]
     Active Substance: COLISTIN
     Indication: Bacterial infection
     Dosage: UNK
     Route: 065
  6. COLISTIN [Suspect]
     Active Substance: COLISTIN
     Indication: Pneumonia klebsiella
  7. AMIODARONE [Concomitant]
     Active Substance: AMIODARONE
     Indication: Ventricular fibrillation
  8. ADRENALIN [Concomitant]
     Active Substance: EPINEPHRINE
     Indication: Ventricular fibrillation
  9. ABCIXIMAB [Concomitant]
     Active Substance: ABCIXIMAB
     Indication: Vascular stent thrombosis

REACTIONS (1)
  - Chronic kidney disease [Not Recovered/Not Resolved]
